FAERS Safety Report 12155519 (Version 1)
Quarter: 2016Q1

REPORT INFORMATION
  Report Type: Spontaneous
  Country: DE (occurrence: DE)
  Receive Date: 20160307
  Receipt Date: 20160307
  Transmission Date: 20160526
  Serious: Yes (Other)
  Sender: FDA-Public Use
  Company Number: DE-IMPAX LABORATORIES, INC-2016-IPXL-00214

PATIENT
  Age: 38 Year
  Sex: Female

DRUGS (2)
  1. PHENYTOIN CHEWABLE [Suspect]
     Active Substance: PHENYTOIN
     Indication: EPILEPSY
     Dosage: 100 MG IN THE MORNING AND 150 MG AT NIGHT
     Route: 065
  2. DIVALPROEX SODIUM ER [Suspect]
     Active Substance: DIVALPROEX SODIUM
     Indication: EPILEPSY
     Dosage: 500 MG, 2 /DAY
     Route: 065

REACTIONS (2)
  - Pseudolymphoma [Recovered/Resolved]
  - Mycosis fungoides [Unknown]
